FAERS Safety Report 6683064-4 (Version None)
Quarter: 2010Q2

REPORT INFORMATION
  Report Type: 
  Country: None (occurrence: None)
  Receive Date: 20100415
  Receipt Date: 20100407
  Transmission Date: 20101027
  Serious: Yes (Other)
  Sender: FDA-Public Use
  Company Number: PHHY2010MX05758

PATIENT
  Age: 70 Year
  Sex: Female

DRUGS (2)
  1. ZELMAC [Suspect]
     Indication: IRRITABLE BOWEL SYNDROME
     Dosage: 6 MG, 1TABLET PER DAY
     Route: 048
     Dates: start: 20060101
  2. ZELMAC [Suspect]
     Dosage: 6MG, 1TABLET PER DAY
     Route: 048
     Dates: start: 20100123

REACTIONS (5)
  - ABDOMINAL DISTENSION [None]
  - CONSTIPATION [None]
  - FALL [None]
  - SPINAL COLUMN INJURY [None]
  - SURGERY [None]
